FAERS Safety Report 4656781-5 (Version None)
Quarter: 2005Q2

REPORT INFORMATION
  Report Type: 
  Country: None (occurrence: None)
  Receive Date: 20050506
  Receipt Date: 20050427
  Transmission Date: 20051028
  Serious: No
  Sender: FDA-Public Use
  Company Number: 2005PK00258

PATIENT
  Age: 24 Year
  Sex: Male
  Weight: 85 kg

DRUGS (2)
  1. NAROPIN [Suspect]
     Indication: ANAESTHESIA
     Dosage: 200 MG DAILY PNEU
  2. XYLONEST [Suspect]
     Indication: NERVE BLOCK
     Dosage: 200 MG DAILY PNEU

REACTIONS (1)
  - GRAND MAL CONVULSION [None]
